FAERS Safety Report 7597983-8 (Version None)
Quarter: 2011Q3

REPORT INFORMATION
  Report Type: 
  Country: None (occurrence: None)
  Receive Date: 20110708
  Receipt Date: 20110629
  Transmission Date: 20111222
  Serious: Yes (Hospitalization)
  Sender: FDA-Public Use
  Company Number: PHHY2011US57804

PATIENT
  Age: 63 Year
  Sex: Male

DRUGS (1)
  1. VALPROIC ACID [Suspect]
     Indication: BIPOLAR DISORDER
     Dosage: 1000 MG, DAILY

REACTIONS (11)
  - HYPONATRAEMIA [None]
  - AGGRESSION [None]
  - HYPERKALAEMIA [None]
  - RENAL IMPAIRMENT [None]
  - BLOOD CORTICOTROPHIN DECREASED [None]
  - HOMICIDAL IDEATION [None]
  - ADRENAL INSUFFICIENCY [None]
  - BLOOD ALDOSTERONE INCREASED [None]
  - RENIN INCREASED [None]
  - BLOOD CORTISOL DECREASED [None]
  - HYPOTENSION [None]
